FAERS Safety Report 23324971 (Version 2)
Quarter: 2024Q1

REPORT INFORMATION
  Report Type: Spontaneous
  Country: ES (occurrence: ES)
  Receive Date: 20231221
  Receipt Date: 20240101
  Transmission Date: 20240409
  Serious: Yes (Other)
  Sender: FDA-Public Use
  Company Number: ES-002147023-NVSC2023ES269983

PATIENT
  Age: 69 Year
  Sex: Female

DRUGS (4)
  1. XOLAIR [Suspect]
     Active Substance: OMALIZUMAB
     Indication: Product used for unknown indication
     Dosage: 150 MG, BID (150 MG IN THE MORNING AND 150 MG IN THE EVENING)
     Route: 065
  2. EBASTINE [Concomitant]
     Active Substance: EBASTINE
     Indication: Rhinorrhoea
     Dosage: 20 MG, QD
  3. EBASTINE [Concomitant]
     Active Substance: EBASTINE
     Indication: Rhinitis
  4. EZETIMIBE [Concomitant]
     Active Substance: EZETIMIBE

REACTIONS (5)
  - Angioedema [Unknown]
  - Mobility decreased [Unknown]
  - Myalgia [Unknown]
  - Alopecia [Unknown]
  - Arthralgia [Not Recovered/Not Resolved]
